FAERS Safety Report 6125479-9 (Version None)
Quarter: 2009Q1

REPORT INFORMATION
  Report Type: 
  Country: None (occurrence: None)
  Receive Date: 20090320
  Receipt Date: 20090318
  Transmission Date: 20090719
  Serious: Yes (Death, Hospitalization)
  Sender: FDA-Public Use
  Company Number: PHHY2009CR09893

PATIENT
  Age: 73 Year
  Sex: Male

DRUGS (7)
  1. DIOVAN [Suspect]
     Indication: HYPERTENSION
     Dosage: 160 MG, QD
     Route: 048
  2. INSULIN [Concomitant]
     Dosage: 15 U IN THE MORNING AND 5 U IN THE AFTERNOON
  3. AMLODIPINE [Concomitant]
     Dosage: 5 MG, PER DAY
     Route: 048
  4. LASIX [Concomitant]
     Dosage: 40 MG, PER DAY
     Route: 048
  5. ESPIRONOLACTONA [Concomitant]
     Dosage: 0.5 DF, UNK
     Route: 048
  6. DIGOXIN [Concomitant]
     Dosage: 0.25 MG, PER DAY
     Route: 048
  7. THEOPHYLLINE [Concomitant]
     Dosage: 1 DF, UNK
     Route: 048

REACTIONS (3)
  - DEATH [None]
  - PNEUMONIA [None]
  - SEPSIS [None]
